FAERS Safety Report 14528365 (Version 1)
Quarter: 2018Q1

REPORT INFORMATION
  Report Type: Spontaneous
  Country: FR (occurrence: FR)
  Receive Date: 20180214
  Receipt Date: 20180214
  Transmission Date: 20180509
  Serious: Yes (Death, Other)
  Sender: FDA-Public Use
  Company Number: FR-ALKEM LABORATORIES LIMITED-FR-ALKEM-2018-00435

PATIENT
  Age: 63 Year
  Sex: Male

DRUGS (5)
  1. TACROLIMUS. [Suspect]
     Active Substance: TACROLIMUS
     Indication: IMMUNOSUPPRESSION
     Dosage: UNK SERUM TROUGH LEVELS BETWEEN 7 AND 8 ?G/L
     Route: 065
  2. TACROLIMUS. [Suspect]
     Active Substance: TACROLIMUS
     Dosage: UNK SERUM TROUGH LEVELS BETWEEN 5 AND 6 ?G/L
     Route: 065
  3. CORTICOSTEROIDS [Suspect]
     Active Substance: CORTICOSTEROID NOS
     Indication: IMMUNOSUPPRESSION
     Dosage: 10 MG, QD
     Route: 065
  4. CORTICOSTEROIDS [Suspect]
     Active Substance: CORTICOSTEROID NOS
     Dosage: 7.5 MG, QD
     Route: 065
  5. MYCOPHENOLATE MOFETIL. [Suspect]
     Active Substance: MYCOPHENOLATE MOFETIL
     Indication: IMMUNOSUPPRESSION
     Dosage: 1000 MG, BID
     Route: 065

REACTIONS (6)
  - Transplant rejection [Recovered/Resolved]
  - Septic shock [Fatal]
  - Fungal infection [Recovered/Resolved]
  - Pneumonia [Unknown]
  - Chronic kidney disease [Unknown]
  - Brain abscess [Recovered/Resolved]
